FAERS Safety Report 24702725 (Version 6)
Quarter: 2025Q1

REPORT INFORMATION
  Report Type: Spontaneous
  Country: US (occurrence: US)
  Receive Date: 20241205
  Receipt Date: 20250109
  Transmission Date: 20250408
  Serious: Yes (Death, Hospitalization, Other)
  Sender: GILEAD
  Company Number: US-GILEAD-2024-0696055

PATIENT
  Age: 64 Year
  Sex: Female
  Weight: 105.22 kg

DRUGS (9)
  1. YESCARTA [Suspect]
     Active Substance: AXICABTAGENE CILOLEUCEL
     Indication: Lymphoma
     Route: 065
     Dates: start: 20240701, end: 20240701
  2. YESCARTA [Suspect]
     Active Substance: AXICABTAGENE CILOLEUCEL
     Indication: Diffuse large B-cell lymphoma refractory
  3. FLUDARABINE [Concomitant]
     Active Substance: FLUDARABINE PHOSPHATE
     Indication: Lymphodepletion
  4. CYCLOPHOSPHAMIDE [Concomitant]
     Active Substance: CYCLOPHOSPHAMIDE
     Indication: Lymphodepletion
  5. MESNA [Concomitant]
     Active Substance: MESNA
     Indication: Lymphodepletion
  6. EPCORITAMAB [Concomitant]
     Active Substance: EPCORITAMAB
     Dates: end: 20241114
  7. METFORMIN [Concomitant]
     Active Substance: METFORMIN HYDROCHLORIDE
  8. ESCITALOPRAM [Concomitant]
     Active Substance: ESCITALOPRAM OXALATE
  9. PRECEDEX [Concomitant]
     Active Substance: DEXMEDETOMIDINE HYDROCHLORIDE

REACTIONS (18)
  - Diffuse large B-cell lymphoma [Fatal]
  - Multiple organ dysfunction syndrome [Fatal]
  - Intestinal perforation [Fatal]
  - Septic shock [Unknown]
  - Pneumonia staphylococcal [Unknown]
  - Staphylococcal bacteraemia [Unknown]
  - Pancytopenia [Unknown]
  - Pulmonary oedema [Unknown]
  - Acute kidney injury [Unknown]
  - Respiratory failure [Unknown]
  - Hypogammaglobulinaemia [Unknown]
  - Toxic encephalopathy [Unknown]
  - Metabolic encephalopathy [Unknown]
  - Cytokine release syndrome [Recovered/Resolved]
  - Immune effector cell-associated neurotoxicity syndrome [Recovered/Resolved]
  - Therapy non-responder [Not Recovered/Not Resolved]
  - Skin discolouration [Unknown]
  - Fungal infection [Unknown]

NARRATIVE: CASE EVENT DATE: 20240702
